FAERS Safety Report 21161290 (Version 3)
Quarter: 2022Q3

REPORT INFORMATION
  Report Type: Spontaneous
  Country: CA (occurrence: CA)
  Receive Date: 20220802
  Receipt Date: 20220812
  Transmission Date: 20221026
  Serious: Yes (Other)
  Sender: FDA-Public Use
  Company Number: CA-PFIZER INC-PV202200023827

PATIENT
  Age: 78 Year
  Sex: Male

DRUGS (2)
  1. BRAFTOVI [Suspect]
     Active Substance: ENCORAFENIB
     Indication: Metastatic malignant melanoma
     Dosage: 300 MG (4 CAPS), DAILY
     Route: 048
     Dates: start: 20220716, end: 20220727
  2. MEKTOVI [Suspect]
     Active Substance: BINIMETINIB
     Dosage: 45 MG (3 TAB), EVERY 12 HOURS
     Dates: start: 20220716, end: 20220727

REACTIONS (3)
  - Atrial fibrillation [Unknown]
  - Ocular hyperaemia [Unknown]
  - Malaise [Recovering/Resolving]

NARRATIVE: CASE EVENT DATE: 20220701
